FAERS Safety Report 18053461 (Version 2)
Quarter: 2020Q3

REPORT INFORMATION
  Report Type: Spontaneous
  Country: JP (occurrence: JP)
  Receive Date: 20200722
  Receipt Date: 20200914
  Transmission Date: 20201103
  Serious: Yes (Disabling, Other)
  Sender: FDA-Public Use
  Company Number: JP-GLAXOSMITHKLINE-JP2020JPN134951

PATIENT
  Age: 34 Year
  Sex: Female

DRUGS (1)
  1. LAMICTAL [Suspect]
     Active Substance: LAMOTRIGINE
     Dosage: 25 MG, QOD
     Route: 048
     Dates: start: 20140621, end: 20140702

REACTIONS (4)
  - Motor dysfunction [Unknown]
  - Haemophagocytic lymphohistiocytosis [Unknown]
  - Disseminated intravascular coagulation [Unknown]
  - Intensive care unit acquired weakness [Unknown]
